FAERS Safety Report 8978355 (Version 1)
Quarter: 2012Q4

REPORT INFORMATION
  Report Type: 
  Country: US (occurrence: US)
  Receive Date: 20121221
  Receipt Date: 20121221
  Transmission Date: 20130627
  Serious: No
  Sender: FDA-Public Use
  Company Number: US-009507513-1212USA007475

PATIENT
  Sex: Female

DRUGS (4)
  1. PROVENTIL [Suspect]
     Indication: ASTHMA
     Dosage: once daily as needed
     Dates: start: 201210, end: 201211
  2. OMEPRAZOLE [Concomitant]
     Dosage: UNK
  3. LOESTRIN [Concomitant]
     Dosage: UNK
  4. FLOVENT [Concomitant]
     Dosage: UNK

REACTIONS (1)
  - Palpitations [Recovered/Resolved]
